FAERS Safety Report 16918946 (Version 1)
Quarter: 2019Q4

REPORT INFORMATION
  Report Type: Spontaneous
  Country: US (occurrence: US)
  Receive Date: 20191015
  Receipt Date: 20191015
  Transmission Date: 20200122
  Serious: No
  Sender: FDA-Public Use
  Company Number: US-PFIZER INC-2019442649

PATIENT
  Age: 65 Year
  Sex: Female

DRUGS (1)
  1. MIDAZOLAM HCL [Suspect]
     Active Substance: MIDAZOLAM HYDROCHLORIDE
     Dosage: UNK

REACTIONS (3)
  - Tachycardia [Unknown]
  - Rash [Unknown]
  - Drug hypersensitivity [Unknown]
